FAERS Safety Report 22301523 (Version 2)
Quarter: 2023Q2

REPORT INFORMATION
  Report Type: Report from Study
  Country: US (occurrence: US)
  Receive Date: 20230510
  Receipt Date: 20230514
  Transmission Date: 20230721
  Serious: Yes (Other)
  Sender: FDA-Public Use
  Company Number: US-ABBVIE-4755304

PATIENT
  Age: 71 Year
  Sex: Male

DRUGS (1)
  1. HUMIRA [Suspect]
     Active Substance: ADALIMUMAB
     Indication: Rheumatoid arthritis
     Route: 058
     Dates: start: 20150812

REACTIONS (4)
  - Surgery [Unknown]
  - Skin abrasion [Unknown]
  - Musculoskeletal pain [Unknown]
  - Groin pain [Unknown]

NARRATIVE: CASE EVENT DATE: 20230406
